FAERS Safety Report 10610575 (Version 5)
Quarter: 2015Q2

REPORT INFORMATION
  Report Type: Other
  Country: US (occurrence: US)
  Receive Date: 20141126
  Receipt Date: 20150629
  Transmission Date: 20150821
  Serious: Yes (Death, Hospitalization, Other)
  Sender: FDA-Public Use
  Company Number: US-ACORDA-ACO_107075_2014

PATIENT
  Sex: Male

DRUGS (1)
  1. AMPYRA [Suspect]
     Active Substance: DALFAMPRIDINE
     Indication: MULTIPLE SCLEROSIS
     Dosage: 1 DF, WEEKLY
     Route: 065

REACTIONS (7)
  - Multiple sclerosis [Fatal]
  - Heart rate increased [Unknown]
  - Fluid imbalance [Unknown]
  - Myocardial infarction [Fatal]
  - Inappropriate schedule of drug administration [Unknown]
  - Pneumonia [Unknown]
  - Blister [Unknown]

NARRATIVE: CASE EVENT DATE: 20141110
